FAERS Safety Report 9435285 (Version 2)
Quarter: 2013Q3

REPORT INFORMATION
  Report Type: Report from Study
  Country: US (occurrence: US)
  Receive Date: 20130801
  Receipt Date: 20130808
  Transmission Date: 20140515
  Serious: Yes (Death, Other)
  Sender: FDA-Public Use
  Company Number: PHEH2013US016170

PATIENT
  Age: 62 Year
  Sex: Male

DRUGS (2)
  1. GILENYA [Suspect]
     Indication: MULTIPLE SCLEROSIS
     Dosage: 0.5 MG, QD
     Route: 048
     Dates: start: 201205, end: 201302
  2. BACLOFEN [Concomitant]

REACTIONS (5)
  - Respiratory failure [Fatal]
  - Coma [Unknown]
  - JC virus test positive [Unknown]
  - Malaise [Unknown]
  - Multiple sclerosis relapse [Unknown]
